FAERS Safety Report 10239025 (Version 4)
Quarter: 2014Q3

REPORT INFORMATION
  Report Type: Spontaneous
  Country: ES (occurrence: ES)
  Receive Date: 20140616
  Receipt Date: 20140825
  Transmission Date: 20150326
  Serious: Yes (Death)
  Sender: FDA-Public Use
  Company Number: ES-SA-2014SA074978

PATIENT
  Age: 69 Year
  Sex: Male
  Weight: 65 kg

DRUGS (7)
  1. ACYCLOVIR. [Concomitant]
     Active Substance: ACYCLOVIR
     Indication: PROPHYLAXIS
     Dates: end: 20140528
  2. EVOLTRA [Suspect]
     Active Substance: CLOFARABINE
     Indication: ACUTE MYELOID LEUKAEMIA
     Route: 042
     Dates: start: 20140502, end: 20140505
  3. CITARABINA [Suspect]
     Active Substance: CYTARABINE
     Indication: ACUTE MYELOID LEUKAEMIA
     Dosage: DOSE:1 GRAM(S)/SQUARE METER
     Route: 065
     Dates: start: 20140502, end: 20140505
  4. TAZOCEL [Concomitant]
     Active Substance: PIPERACILLIN SODIUM\TAZOBACTAM SODIUM
     Indication: PROPHYLAXIS
     Dates: end: 20140528
  5. VORICONAZOLE. [Concomitant]
     Active Substance: VORICONAZOLE
     Indication: PROPHYLAXIS
     Dates: end: 20140502
  6. HYDROCORTISONE. [Concomitant]
     Active Substance: HYDROCORTISONE
     Indication: PROPHYLAXIS
     Dates: start: 20140502, end: 20140505
  7. LINEZOLID. [Concomitant]
     Active Substance: LINEZOLID
     Dates: start: 20140503, end: 20140506

REACTIONS (5)
  - Anuria [Fatal]
  - Muscular weakness [Fatal]
  - Renal failure acute [Fatal]
  - Acute polyneuropathy [Fatal]
  - Renal impairment [Fatal]

NARRATIVE: CASE EVENT DATE: 20140507
